FAERS Safety Report 9918197 (Version 1)
Quarter: 2014Q1

REPORT INFORMATION
  Report Type: Spontaneous
  Country: AU (occurrence: AU)
  Receive Date: 20140223
  Receipt Date: 20140223
  Transmission Date: 20141002
  Serious: Yes (Other)
  Sender: FDA-Public Use
  Company Number: AU-MYLANLABS-2014S1003278

PATIENT
  Age: 46 Year
  Sex: Female

DRUGS (4)
  1. LEVETIRACETAM [Suspect]
     Indication: IDIOPATHIC GENERALISED EPILEPSY
     Dosage: 500MG II BID AT TIME OF DISCOVERY
     Route: 065
     Dates: start: 2001
  2. LAMOTRIGINE [Suspect]
     Indication: IDIOPATHIC GENERALISED EPILEPSY
     Dosage: 200MG I MANE AND II NOCTE AT TIME OF DISCOVERY
     Route: 065
     Dates: start: 2006
  3. GABAPENTIN [Concomitant]
     Indication: IDIOPATHIC GENERALISED EPILEPSY
     Route: 065
     Dates: end: 2009
  4. VALPROATE [Concomitant]
     Indication: IDIOPATHIC GENERALISED EPILEPSY
     Route: 065
     Dates: end: 2009

REACTIONS (1)
  - Pathological gambling [Unknown]
